FAERS Safety Report 10925790 (Version 1)
Quarter: 2015Q1

REPORT INFORMATION
  Report Type: Report from Study
  Country: CA (occurrence: CA)
  Receive Date: 20150318
  Receipt Date: 20150318
  Transmission Date: 20150721
  Serious: Yes (Other)
  Sender: FDA-Public Use
  Company Number: CA-AMGEN-CANSL2015022812

PATIENT
  Age: 87 Year
  Sex: Female

DRUGS (6)
  1. PROLIA [Suspect]
     Active Substance: DENOSUMAB
     Indication: OSTEOPOROSIS POSTMENOPAUSAL
     Dosage: 60 MG/ML, UNK
     Route: 065
     Dates: start: 20141002
  2. VITAMINS                           /00067501/ [Concomitant]
     Active Substance: VITAMINS
  3. DIGOXIN. [Concomitant]
     Active Substance: DIGOXIN
  4. APO FUROSEMIDE [Concomitant]
     Active Substance: FUROSEMIDE
  5. BABY ASPIRIN [Concomitant]
     Active Substance: ASPIRIN
  6. RAMIPRIL. [Concomitant]
     Active Substance: RAMIPRIL

REACTIONS (5)
  - Tooth abscess [Not Recovered/Not Resolved]
  - Tooth discolouration [Unknown]
  - Tooth disorder [Not Recovered/Not Resolved]
  - Sensitivity of teeth [Not Recovered/Not Resolved]
  - Toothache [Unknown]
